FAERS Safety Report 5149519-9 (Version None)
Quarter: 2006Q4

REPORT INFORMATION
  Report Type: 
  Country: None (occurrence: None)
  Receive Date: 20061113
  Receipt Date: 20060308
  Transmission Date: 20070319
  Serious: No
  Sender: FDA-Public Use
  Company Number: US-GLAXOSMITHKLINE-A0596731A

PATIENT
  Age: 57 Year
  Sex: Female

DRUGS (10)
  1. COREG [Suspect]
     Indication: HYPERTENSION
     Dosage: 12.5MG TWICE PER DAY
     Route: 048
     Dates: start: 20030101
  2. DYNASTAT [Concomitant]
  3. ATACAND HCT [Concomitant]
  4. ZETIA [Concomitant]
  5. CYMBALTA [Concomitant]
  6. BONIVA [Concomitant]
  7. GLUCOSAMINE SULFATE [Concomitant]
  8. SELENIUM SULFIDE [Concomitant]
  9. ALEVE [Concomitant]
  10. NIACIN [Concomitant]
     Route: 048

REACTIONS (6)
  - ALOPECIA [None]
  - DRY EYE [None]
  - INCREASED TENDENCY TO BRUISE [None]
  - MUSCLE SPASMS [None]
  - SOMNOLENCE [None]
  - VISUAL ACUITY REDUCED [None]
